FAERS Safety Report 7655032-7 (Version None)
Quarter: 2011Q3

REPORT INFORMATION
  Report Type: 
  Country: None (occurrence: None)
  Receive Date: 20110728
  Receipt Date: 20110712
  Transmission Date: 20111222
  Serious: No
  Sender: FDA-Public Use
  Company Number: TPA2011A04222

PATIENT
  Age: 43 Year
  Sex: Male

DRUGS (3)
  1. COLCHICINE [Concomitant]
  2. ADENURIC (FEBUXOSTAT) [Suspect]
     Indication: HYPERURICAEMIA
     Dosage: 80 MG (80 MG, 1 IN 1 D), PER ORAL
     Route: 048
     Dates: start: 20110617, end: 20110628
  3. INDOMETHACIN [Concomitant]

REACTIONS (3)
  - HEADACHE [None]
  - BLINDNESS UNILATERAL [None]
  - GLAUCOMA [None]
